FAERS Safety Report 7534808-0 (Version None)
Quarter: 2011Q2

REPORT INFORMATION
  Report Type: 
  Country: None (occurrence: None)
  Receive Date: 20110609
  Receipt Date: 20080904
  Transmission Date: 20111010
  Serious: Yes (Death)
  Sender: FDA-Public Use
  Company Number: PHHY2008CA19753

PATIENT
  Sex: Female

DRUGS (6)
  1. TOPAMAX [Concomitant]
     Dosage: 200 MG QHS
  2. ZOPICLONE [Concomitant]
     Dosage: 15 MG, QHS
  3. RISPERDAL [Concomitant]
     Dosage: 1 MG, BID
  4. RISPERDAL [Concomitant]
     Dosage: 50 MG, BID
     Route: 030
  5. CLOZAPINE [Suspect]
     Indication: SCHIZOPHRENIA
     Dosage: 475 MG, UNK
     Route: 048
     Dates: start: 20080605
  6. DICLOFENAC SODIUM [Concomitant]
     Dosage: 50 MG, BID

REACTIONS (1)
  - DEATH [None]
